FAERS Safety Report 25877046 (Version 2)
Quarter: 2025Q4

REPORT INFORMATION
  Report Type: Report from Study
  Country: US (occurrence: US)
  Receive Date: 20251003
  Receipt Date: 20251020
  Transmission Date: 20260117
  Serious: No
  Sender: MALLINCKRODT
  Company Number: US-MALLINCKRODT-MNK202505634

PATIENT
  Sex: Female
  Weight: 295 kg

DRUGS (27)
  1. CORTICOTROPIN [Suspect]
     Active Substance: CORTICOTROPIN
     Indication: Dermatomyositis
     Dosage: 80 UNITS
     Route: 058
  2. CORTICOTROPIN [Suspect]
     Active Substance: CORTICOTROPIN
     Indication: Dermatomyositis
  3. CORTICOTROPIN [Suspect]
     Active Substance: CORTICOTROPIN
     Indication: Dermatomyositis
  4. CORTICOTROPIN [Suspect]
     Active Substance: CORTICOTROPIN
     Indication: Illness
  5. BOS TAURUS BILE [Concomitant]
     Active Substance: BOS TAURUS BILE
     Dosage: UNKNOWN
  6. MULTI COLLAGEN PROTEIN [Concomitant]
     Dosage: UNKNOWN
  7. TYROSINE [Concomitant]
     Active Substance: TYROSINE
     Dosage: UNKNOWN
  8. BETA GLUCAN [Concomitant]
     Active Substance: BETA GLUCAN
     Dosage: UNKNOWN
  9. FERROUS BISGLYCINATE [Concomitant]
     Active Substance: FERROUS BISGLYCINATE
     Dosage: UNKNOWN
  10. COLACE [Concomitant]
     Active Substance: DOCUSATE SODIUM
     Dosage: UNKNOWN
  11. TART CHERRY [Concomitant]
     Dosage: UNKNOWN
  12. VITAMIN D3 [Concomitant]
     Active Substance: CHOLECALCIFEROL
     Dosage: UNKNOWN
  13. PROBIOTIC 10 [BIFIDOBACTERIUM BIFIDUM;BIFIDOBACTERIUM LACTIS;LACTIPLAN [Concomitant]
     Dosage: UNKNOWN
  14. PREDNISOLONE [Concomitant]
     Active Substance: PREDNISOLONE
     Dosage: UNKNOWN
  15. HYDROXYZINE HYDROCHLORIDE [Concomitant]
     Active Substance: HYDROXYZINE HYDROCHLORIDE
     Dosage: UNKNOWN
  16. ELIQUIS [Concomitant]
     Active Substance: APIXABAN
     Dosage: UNKNWON
  17. METOPROLOL SUCCINATE [Concomitant]
     Active Substance: METOPROLOL SUCCINATE
     Dosage: UNKNOWN
  18. ROSUVASTATIN CALCIUM [Concomitant]
     Active Substance: ROSUVASTATIN CALCIUM
     Dosage: UNKNOWN
  19. LEVOTHYROXINE SODIUM [Concomitant]
     Active Substance: LEVOTHYROXINE SODIUM
     Dosage: UNKNOWN
  20. LISINOPRIL [Concomitant]
     Active Substance: LISINOPRIL
     Dosage: UNKNOWN
  21. NEPAFENAC;PREDNISOLONE [Concomitant]
     Dosage: UNKNOWN
  22. KETOROLAC TROMETHAMINE [Concomitant]
     Active Substance: KETOROLAC TROMETHAMINE
     Dosage: UNKNOWN
  23. MOXIFLOXACIN [Concomitant]
     Active Substance: MOXIFLOXACIN
     Dosage: UNKNOWN
  24. OMEPRAZOLE [Concomitant]
     Active Substance: OMEPRAZOLE
     Dosage: UNKNOWN
  25. ALLOPURINOL [Concomitant]
     Active Substance: ALLOPURINOL
     Dosage: UNKNOWN
  26. TRADJENTA [Concomitant]
     Active Substance: LINAGLIPTIN
     Dosage: UNKNOWN
  27. GLIMEPIRIDE [Concomitant]
     Active Substance: GLIMEPIRIDE
     Dosage: UNKNOWN

REACTIONS (1)
  - Injection site discharge [Unknown]
